FAERS Safety Report 7237161-5 (Version None)
Quarter: 2011Q1

REPORT INFORMATION
  Report Type: 
  Country: None (occurrence: None)
  Receive Date: 20110121
  Receipt Date: 20110107
  Transmission Date: 20110831
  Serious: Yes (Other)
  Sender: FDA-Public Use
  Company Number: US-RANBAXY-2011RR-41176

PATIENT
  Sex: Male

DRUGS (3)
  1. LEVAQUIN [Suspect]
     Indication: PROSTATITIS
     Dosage: 500 MG, UNK
     Route: 048
     Dates: start: 20050501
  2. CIPROFLOXACIN [Suspect]
     Indication: PROSTATITIS
     Route: 065
  3. LEVAQUIN [Suspect]
     Dosage: 500 MG/ML
     Route: 042
     Dates: start: 20050219

REACTIONS (3)
  - BURSA INJURY [None]
  - ROTATOR CUFF SYNDROME [None]
  - JOINT INJURY [None]
